FAERS Safety Report 23819250 (Version 2)
Quarter: 2024Q2

REPORT INFORMATION
  Report Type: Report from Study
  Country: US (occurrence: US)
  Receive Date: 20240506
  Receipt Date: 20240514
  Transmission Date: 20240715
  Serious: No
  Sender: FDA-Public Use
  Company Number: US-SANOFI-02030558

PATIENT
  Age: 3 Year
  Sex: Male

DRUGS (1)
  1. DUPILUMAB [Suspect]
     Active Substance: DUPILUMAB
     Indication: Eczema
     Dosage: 200 MG, Q4W
     Route: 065

REACTIONS (1)
  - Product storage error [Unknown]
